FAERS Safety Report 19367342 (Version 2)
Quarter: 2021Q4

REPORT INFORMATION
  Report Type: Spontaneous
  Country: US (occurrence: US)
  Receive Date: 20210602
  Receipt Date: 20211011
  Transmission Date: 20220303
  Serious: No
  Sender: FDA-Public Use
  Company Number: US-ROCHE-2784381

PATIENT
  Age: 35 Year
  Sex: Female
  Weight: 50 kg

DRUGS (3)
  1. EVRYSDI [Suspect]
     Active Substance: RISDIPLAM
     Indication: Spinal muscular atrophy
     Route: 048
     Dates: start: 20201204, end: 20210305
  2. DEPO-PROVERA [Concomitant]
     Active Substance: MEDROXYPROGESTERONE ACETATE
     Route: 030
  3. NARATRIPTAN [Concomitant]
     Active Substance: NARATRIPTAN HYDROCHLORIDE
     Route: 048

REACTIONS (5)
  - Muscle spasms [Unknown]
  - Muscle spasms [Unknown]
  - Back pain [Unknown]
  - Constipation [Unknown]
  - Pyrexia [Unknown]

NARRATIVE: CASE EVENT DATE: 20210201
